FAERS Safety Report 9268915 (Version 17)
Quarter: 2016Q1

REPORT INFORMATION
  Report Type: Report from Study
  Country: CA (occurrence: CA)
  Receive Date: 20130503
  Receipt Date: 20160211
  Transmission Date: 20160526
  Serious: Yes (Other)
  Sender: FDA-Public Use
  Company Number: CA-ROCHE-1185133

PATIENT
  Age: 53 Year
  Sex: Female
  Weight: 50 kg

DRUGS (6)
  1. PREDNISONE. [Concomitant]
     Active Substance: PREDNISONE
  2. INSULIN [Concomitant]
     Active Substance: INSULIN NOS
  3. CYMBALTA [Concomitant]
     Active Substance: DULOXETINE HYDROCHLORIDE
  4. CRANBERRY. [Concomitant]
     Active Substance: CRANBERRY
     Route: 065
  5. D50W [Concomitant]
  6. ACTEMRA [Suspect]
     Active Substance: TOCILIZUMAB
     Indication: RHEUMATOID ARTHRITIS
     Dosage: DATE OF LAST INFUSION:/DEC/2012.
     Route: 042
     Dates: start: 20120523

REACTIONS (19)
  - Fibromyalgia [Not Recovered/Not Resolved]
  - Blood pressure diastolic decreased [Unknown]
  - Heart rate increased [Unknown]
  - Kidney infection [Not Recovered/Not Resolved]
  - Hypotension [Unknown]
  - Malaise [Unknown]
  - Infusion related reaction [Unknown]
  - Cystitis [Not Recovered/Not Resolved]
  - Generalised tonic-clonic seizure [Recovered/Resolved]
  - Blood pressure diastolic decreased [Unknown]
  - Pneumonia [Recovered/Resolved]
  - Localised infection [Recovering/Resolving]
  - Heart rate decreased [Unknown]
  - Weight increased [Not Recovered/Not Resolved]
  - Hypotension [Unknown]
  - Eye infection [Not Recovered/Not Resolved]
  - Infection [Unknown]
  - Wound [Not Recovered/Not Resolved]
  - Herpes zoster [Recovered/Resolved]

NARRATIVE: CASE EVENT DATE: 2013
